FAERS Safety Report 7576692-5 (Version None)
Quarter: 2011Q2

REPORT INFORMATION
  Report Type: 
  Country: None (occurrence: None)
  Receive Date: 20110628
  Receipt Date: 20110610
  Transmission Date: 20111010
  Serious: Yes (Hospitalization, Disabling, Other)
  Sender: FDA-Public Use
  Company Number: SG-BAYER-2011-050282

PATIENT
  Sex: Female

DRUGS (2)
  1. AVELOX [Suspect]
     Indication: OROPHARYNGEAL PAIN
     Dosage: UNK
     Route: 048
     Dates: start: 20110501
  2. AVELOX [Suspect]
     Dosage: UNK
     Dates: start: 20110607

REACTIONS (7)
  - DYSPNOEA [None]
  - FACE OEDEMA [None]
  - RASH [None]
  - ERYTHEMA [None]
  - HOT FLUSH [None]
  - ANAPHYLACTIC SHOCK [None]
  - URINARY RETENTION [None]
